FAERS Safety Report 8168482-X (Version None)
Quarter: 2012Q1

REPORT INFORMATION
  Report Type: 
  Country: None (occurrence: None)
  Receive Date: 20120227
  Receipt Date: 20120227
  Transmission Date: 20120608
  Serious: Yes (Other)
  Sender: FDA-Public Use
  Company Number: None

PATIENT
  Age: 18 Year
  Sex: Female

DRUGS (2)
  1. DICYCLOMINE [Suspect]
     Indication: IRRITABLE BOWEL SYNDROME
     Dosage: 20.0 MG
     Route: 048
     Dates: start: 20120213, end: 20120222
  2. SPIRNTEC [Concomitant]

REACTIONS (5)
  - DYSPNOEA [None]
  - ANXIETY [None]
  - RASH [None]
  - MUSCULAR WEAKNESS [None]
  - CHEST DISCOMFORT [None]
